FAERS Safety Report 6584868-9 (Version None)
Quarter: 2010Q1

REPORT INFORMATION
  Report Type: 
  Country: None (occurrence: None)
  Receive Date: 20100217
  Receipt Date: 20100128
  Transmission Date: 20100710
  Serious: Yes (Death, Hospitalization)
  Sender: FDA-Public Use
  Company Number: JP-BAYER-200911632BYL

PATIENT
  Age: 54 Year
  Sex: Female
  Weight: 54 kg

DRUGS (1)
  1. FLUDARA [Suspect]
     Indication: MYELODYSPLASTIC SYNDROME
     Dosage: AS USED: 32 MG  UNIT DOSE: 50 MG
     Route: 042
     Dates: start: 20080404, end: 20080405

REACTIONS (2)
  - SEPTIC SHOCK [None]
  - THROMBOTIC MICROANGIOPATHY [None]
